FAERS Safety Report 4284324-7 (Version None)
Quarter: 2004Q1

REPORT INFORMATION
  Report Type: 
  Country: None (occurrence: None)
  Receive Date: 20040203
  Receipt Date: 20030411
  Transmission Date: 20041129
  Serious: Yes (Hospitalization, Disabling)
  Sender: FDA-Public Use
  Company Number: WAES 0304USA01433

PATIENT
  Age: 64 Year
  Sex: Female
  Weight: 68 kg

DRUGS (3)
  1. HYZAAR [Concomitant]
     Indication: HYPERTENSION
     Route: 048
     Dates: start: 19970306
  2. VIOXX [Suspect]
     Indication: FIBROMYALGIA
     Route: 048
     Dates: start: 20010507, end: 20011010
  3. VIOXX [Suspect]
     Indication: PHLEBITIS
     Route: 048
     Dates: start: 20010507, end: 20011010

REACTIONS (23)
  - ANXIETY [None]
  - ARTERIOSPASM CORONARY [None]
  - ARTHROPATHY [None]
  - ATRIAL FIBRILLATION [None]
  - BLOOD CHOLESTEROL INCREASED [None]
  - CARDIOACTIVE DRUG LEVEL INCREASED [None]
  - CHOLELITHIASIS [None]
  - COLITIS [None]
  - GASTRIC DISORDER [None]
  - GLAUCOMA [None]
  - HEPATIC STEATOSIS [None]
  - HEPATOMEGALY [None]
  - HORMONE LEVEL ABNORMAL [None]
  - MYOCARDIAL INFARCTION [None]
  - NEPHROLITHIASIS [None]
  - OEDEMA PERIPHERAL [None]
  - OESOPHAGEAL SPASM [None]
  - OVERDOSE [None]
  - PALPITATIONS [None]
  - PRINZMETAL ANGINA [None]
  - ROAD TRAFFIC ACCIDENT [None]
  - STRESS SYMPTOMS [None]
  - VENOUS INSUFFICIENCY [None]
